FAERS Safety Report 22666815 (Version 4)
Quarter: 2023Q4

REPORT INFORMATION
  Report Type: Report from Study
  Country: BR (occurrence: BR)
  Receive Date: 20230703
  Receipt Date: 20231018
  Transmission Date: 20240110
  Serious: Yes (Other)
  Sender: FDA-Public Use
  Company Number: BR-002147023-NVSC2023BR141047

PATIENT

DRUGS (6)
  1. DICLOFENAC [Suspect]
     Active Substance: DICLOFENAC
     Indication: Product used for unknown indication
     Dosage: UNK (1 UNK)
     Route: 065
  2. COSENTYX [Suspect]
     Active Substance: SECUKINUMAB
     Indication: Ankylosing spondylitis
     Dosage: 1 DF
     Route: 065
     Dates: start: 202005
  3. COSENTYX [Suspect]
     Active Substance: SECUKINUMAB
     Dosage: 1 DF (1 DOSAGE FORM, QMO) (INJECTION NOT OTHERWISE SPECIFIED)
     Route: 065
  4. LOSARTAN POTASSIUM [Concomitant]
     Active Substance: LOSARTAN POTASSIUM
     Indication: Product used for unknown indication
     Dosage: UNK
     Route: 065
  5. ATENOLOL [Concomitant]
     Active Substance: ATENOLOL
     Indication: Product used for unknown indication
     Dosage: UNK
     Route: 065
  6. CYCLOBENZAPRINE [Concomitant]
     Active Substance: CYCLOBENZAPRINE
     Indication: Product used for unknown indication
     Dosage: UNK
     Route: 065

REACTIONS (26)
  - Glaucoma [Unknown]
  - Intestinal obstruction [Not Recovered/Not Resolved]
  - Uveitis [Recovered/Resolved]
  - Bacterial colitis [Unknown]
  - Blood pressure increased [Recovered/Resolved]
  - Cough [Unknown]
  - COVID-19 [Unknown]
  - Gait disturbance [Unknown]
  - Diarrhoea [Recovered/Resolved]
  - Nasal crusting [Recovering/Resolving]
  - Headache [Unknown]
  - Blood cholesterol increased [Unknown]
  - Wound [Unknown]
  - Scab [Unknown]
  - Nasal inflammation [Unknown]
  - Rhinalgia [Unknown]
  - Arthralgia [Recovered/Resolved]
  - Pain [Recovered/Resolved]
  - Eructation [Unknown]
  - Dyspnoea [Unknown]
  - Visual impairment [Recovered/Resolved]
  - Gastrooesophageal reflux disease [Unknown]
  - Respiratory disorder [Unknown]
  - Rhinorrhoea [Unknown]
  - Oropharyngeal pain [Unknown]
  - Nasal congestion [Recovered/Resolved]

NARRATIVE: CASE EVENT DATE: 20220101
